FAERS Safety Report 9614638 (Version 1)
Quarter: 2013Q4

REPORT INFORMATION
  Report Type: Spontaneous
  Country: US (occurrence: None)
  Receive Date: 20131009
  Receipt Date: 20131009
  Transmission Date: 20140711
  Serious: Yes (Hospitalization)
  Sender: FDA-Public Use
  Company Number: None

PATIENT
  Age: 80 Year
  Sex: Male
  Weight: 80.7 kg

DRUGS (2)
  1. FERRIPROX [Suspect]
     Indication: HAEMOCHROMATOSIS
     Route: 048
     Dates: start: 20131001, end: 20131022
  2. FERRIPROX [Suspect]
     Indication: TRANSFUSION RELATED COMPLICATION
     Route: 048
     Dates: start: 20131001, end: 20131022

REACTIONS (1)
  - Cardiac failure congestive [None]
